FAERS Safety Report 11313116 (Version 3)
Quarter: 2017Q1

REPORT INFORMATION
  Report Type: Spontaneous
  Country: US (occurrence: US)
  Receive Date: 20150727
  Receipt Date: 20170202
  Transmission Date: 20170428
  Serious: Yes (Hospitalization)
  Sender: FDA-Public Use
  Company Number: US-ABBVIE-15P-163-1393775-00

PATIENT
  Age: 77 Year
  Sex: Female

DRUGS (3)
  1. LEVOXYL [Suspect]
     Active Substance: LEVOTHYROXINE SODIUM
     Route: 048
     Dates: start: 201601
  2. SYNTHROID [Suspect]
     Active Substance: LEVOTHYROXINE SODIUM
     Indication: AUTOIMMUNE THYROIDITIS
     Route: 065
     Dates: start: 1980, end: 2014
  3. LEVOXYL [Suspect]
     Active Substance: LEVOTHYROXINE SODIUM
     Indication: AUTOIMMUNE THYROIDITIS
     Route: 048
     Dates: start: 2015, end: 201601

REACTIONS (13)
  - Nail discolouration [Unknown]
  - Asthenia [Unknown]
  - Blood thyroid stimulating hormone abnormal [Unknown]
  - Hypersensitivity [Unknown]
  - Drug ineffective [Unknown]
  - Skin discolouration [Unknown]
  - Weight increased [Unknown]
  - Rash [Unknown]
  - Blood thyroid stimulating hormone increased [Unknown]
  - Chills [Unknown]
  - Drug effect decreased [Unknown]
  - Fatigue [Unknown]
  - Alopecia [Unknown]

NARRATIVE: CASE EVENT DATE: 201511
